FAERS Safety Report 6817003-X (Version None)
Quarter: 2010Q3

REPORT INFORMATION
  Report Type: 
  Country: None (occurrence: None)
  Receive Date: 20100706
  Receipt Date: 20100623
  Transmission Date: 20110219
  Serious: Yes (Hospitalization, Other)
  Sender: FDA-Public Use
  Company Number: PHEH2008US06120

PATIENT
  Sex: Female

DRUGS (31)
  1. ELIDEL [Suspect]
     Indication: ECZEMA
     Dosage: UNK
     Route: 061
     Dates: start: 20030301
  2. ZYRTEC [Concomitant]
     Dosage: 5-10 MG / DAILY
     Route: 048
  3. ATIVAN [Concomitant]
  4. PRENATAL VITAMINS [Concomitant]
  5. ADVIL LIQUI-GELS [Concomitant]
  6. PERCOCET [Concomitant]
  7. IBUPROFEN [Concomitant]
  8. TYLENOL [Concomitant]
  9. SENOKOT                                 /UNK/ [Concomitant]
  10. NEULASTA [Concomitant]
  11. ASPIRIN [Concomitant]
     Dosage: 81 MG / DAILY
  12. CORTISONE [Concomitant]
     Dosage: UNK
     Route: 062
  13. ALDARA [Concomitant]
  14. HYDROXYZINE [Concomitant]
  15. CEPHALEXIN [Concomitant]
  16. TRIAMCINOLONE [Concomitant]
  17. ZITHROMAX [Concomitant]
  18. DOXYCYCLINE [Concomitant]
     Dosage: 100 MG, UNK
  19. ZANTAC [Concomitant]
  20. CORDRAN [Concomitant]
  21. ATARAX [Concomitant]
  22. SINGULAIR [Concomitant]
  23. AMLODIPINE BESYLATE [Concomitant]
     Dosage: 5 MG, QD
  24. RANITIDINE [Concomitant]
     Dosage: 150 MG, BID
  25. HYDROCODONE BITARTRATE [Concomitant]
     Dosage: 750 MG, UNK
  26. MUPIROCIN [Concomitant]
     Dosage: THREE TIMES A DAY
  27. METHYLPREDNISOLONE [Concomitant]
     Dosage: 4 MG, UNK
  28. NIZORAL [Concomitant]
  29. DIFLUCAN [Concomitant]
     Dosage: 150 MG, UNK
  30. LOPROX [Concomitant]
     Dosage: 1 %, UNK
  31. SULFAMETHOXAZOLE [Concomitant]

REACTIONS (46)
  - ALLERGY TO ANIMAL [None]
  - ALOPECIA [None]
  - ASTHENIA [None]
  - BIOPSY THYMUS GLAND ABNORMAL [None]
  - BLADDER DILATATION [None]
  - CAESAREAN SECTION [None]
  - CHEST DISCOMFORT [None]
  - CYST [None]
  - DERMATOMYOSITIS [None]
  - DIZZINESS [None]
  - DRUG EXPOSURE DURING PREGNANCY [None]
  - DYSPAREUNIA [None]
  - DYSPEPSIA [None]
  - DYSPHONIA [None]
  - EAR INFECTION [None]
  - ECCHYMOSIS [None]
  - ECZEMA [None]
  - FATIGUE [None]
  - GASTROOESOPHAGEAL REFLUX DISEASE [None]
  - GINGIVAL RECESSION [None]
  - HAND FRACTURE [None]
  - HEAD INJURY [None]
  - HEPATOMEGALY [None]
  - HODGKIN'S DISEASE [None]
  - KELOID SCAR [None]
  - LARYNGEAL OEDEMA [None]
  - LARYNGOCELE [None]
  - LYMPHADENOPATHY [None]
  - MASS [None]
  - MYALGIA [None]
  - NIGHT SWEATS [None]
  - PAIN IN EXTREMITY [None]
  - PNEUMOTHORAX [None]
  - PYELOCALIECTASIS [None]
  - RASH [None]
  - RASH MACULAR [None]
  - REFLUX LARYNGITIS [None]
  - RHINITIS ALLERGIC [None]
  - SKIN LESION [None]
  - SKIN PAPILLOMA [None]
  - SPLINT APPLICATION [None]
  - THROAT IRRITATION [None]
  - THROMBOSIS [None]
  - UPPER RESPIRATORY TRACT INFECTION [None]
  - URTICARIA [None]
  - VAGINAL HAEMORRHAGE [None]
